FAERS Safety Report 7001401-8 (Version None)
Quarter: 2010Q3

REPORT INFORMATION
  Report Type: 
  Country: None (occurrence: None)
  Receive Date: 20100920
  Receipt Date: 20091123
  Transmission Date: 20110219
  Serious: Yes (Other)
  Sender: FDA-Public Use
  Company Number: US-ASTRAZENECA-2009UW03107

PATIENT
  Sex: Female

DRUGS (5)
  1. SEROQUEL [Suspect]
     Route: 048
     Dates: start: 20010101, end: 20021201
  2. SEROQUEL [Suspect]
     Route: 048
     Dates: start: 20030101, end: 20050601
  3. SEROQUEL [Suspect]
     Route: 048
     Dates: start: 20050101, end: 20051201
  4. SEROQUEL [Suspect]
     Route: 048
     Dates: start: 20060101, end: 20081201
  5. SEROQUEL [Suspect]
     Route: 048
     Dates: start: 20080901

REACTIONS (4)
  - ADVERSE DRUG REACTION [None]
  - DIABETES MELLITUS [None]
  - HEART RATE IRREGULAR [None]
  - PANCREATITIS [None]
